FAERS Safety Report 11045832 (Version 1)
Quarter: 2015Q2

REPORT INFORMATION
  Report Type: Spontaneous
  Country: US (occurrence: US)
  Receive Date: 20150417
  Receipt Date: 20150417
  Transmission Date: 20150821
  Serious: Yes (Other)
  Sender: FDA-Public Use
  Company Number: US-ASTRAZENECA-2015SE35105

PATIENT
  Age: 78 Year
  Sex: Female
  Weight: 88.5 kg

DRUGS (4)
  1. LISINOPRIL. [Suspect]
     Active Substance: LISINOPRIL
     Indication: HYPERTENSION
     Route: 048
     Dates: start: 2010
  2. UNSPECIFIED OMEPRAZOLE CLASS DRUG [Suspect]
     Active Substance: OMEPRAZOLE
     Indication: GASTROOESOPHAGEAL REFLUX DISEASE
     Route: 065
  3. UNSPECIFIED ALLERGY MED [Concomitant]
     Indication: HYPERSENSITIVITY
  4. ARIMIDEX [Suspect]
     Active Substance: ANASTROZOLE
     Indication: BREAST CANCER
     Route: 048
     Dates: start: 201502, end: 20150408

REACTIONS (9)
  - Depressed mood [Unknown]
  - Sinus disorder [Unknown]
  - Nervousness [Unknown]
  - Nausea [Unknown]
  - Breast cancer [Unknown]
  - Asthenia [Unknown]
  - Insomnia [Unknown]
  - Mood swings [Unknown]
  - Hot flush [Unknown]

NARRATIVE: CASE EVENT DATE: 201409
